FAERS Safety Report 5485337-X (Version None)
Quarter: 2007Q4

REPORT INFORMATION
  Report Type: 
  Country: None (occurrence: None)
  Receive Date: 20071015
  Receipt Date: 20071008
  Transmission Date: 20080405
  Serious: Yes (Hospitalization)
  Sender: FDA-Public Use
  Company Number: FR-WYE-H00560107

PATIENT
  Sex: Female

DRUGS (7)
  1. CORDARONE [Suspect]
     Indication: ATRIAL FIBRILLATION
     Dosage: 200 MG (FREQUENCY UNSPECIFIED)
     Route: 048
  2. DEROXAT [Suspect]
     Indication: DEPRESSION
     Dosage: UNSPECIFIED
     Route: 048
  3. DELURSAN [Suspect]
     Indication: CHOLESTASIS
     Route: 048
  4. OMEPRAZOLE [Suspect]
     Dosage: UNSPECIFIED
     Route: 048
  5. TIENAM [Suspect]
     Dosage: UNSPECIFIED
     Dates: end: 20070303
  6. PREVISCAN [Suspect]
     Indication: ATRIAL FIBRILLATION
     Dosage: 20 MG (FREQUENCY UNSPECIFIED)
     Route: 048
     Dates: end: 20070303
  7. SPECIAFOLDINE [Suspect]
     Indication: ANAEMIA
     Dosage: UNSPECIFIED
     Route: 048

REACTIONS (1)
  - INTRA-ABDOMINAL HAEMATOMA [None]
